FAERS Safety Report 18830806 (Version 2)
Quarter: 2021Q1

REPORT INFORMATION
  Report Type: Spontaneous
  Country: FI (occurrence: FI)
  Receive Date: 20210203
  Receipt Date: 20210324
  Transmission Date: 20210419
  Serious: Yes (Death, Other)
  Sender: FDA-Public Use
  Company Number: FI-AMGEN-FINSP2021013955

PATIENT

DRUGS (3)
  1. NEUPOGEN [Suspect]
     Active Substance: FILGRASTIM
     Indication: HAEMATOPOIETIC STEM CELL MOBILISATION
     Dosage: 5 MILLIGRAM/KILOGRAM, QD
     Route: 065
  2. CYCLOPHOSPHAMIDE. [Concomitant]
     Active Substance: CYCLOPHOSPHAMIDE
     Indication: NON-HODGKIN^S LYMPHOMA
  3. MESNA. [Concomitant]
     Active Substance: MESNA

REACTIONS (14)
  - Pneumonia pneumococcal [Unknown]
  - Hypotension [Unknown]
  - Drug ineffective [Unknown]
  - Multiple organ dysfunction syndrome [Fatal]
  - Candida infection [Unknown]
  - Acute leukaemia [Fatal]
  - Febrile neutropenia [Unknown]
  - Sepsis [Unknown]
  - Pyrexia [Unknown]
  - Fluid retention [Unknown]
  - Disease progression [Fatal]
  - Klebsiella infection [Unknown]
  - Non-Hodgkin^s lymphoma recurrent [Fatal]
  - Death [Fatal]
